FAERS Safety Report 8336303-8 (Version None)
Quarter: 2012Q2

REPORT INFORMATION
  Report Type: 
  Country: None (occurrence: None)
  Receive Date: 20120504
  Receipt Date: 20120426
  Transmission Date: 20120825
  Serious: Yes (Other)
  Sender: FDA-Public Use
  Company Number: PHFR2012GB001718

PATIENT
  Sex: Female

DRUGS (3)
  1. ZOLMITRIPTAN [Concomitant]
     Indication: MIGRAINE
     Dosage: UNK UKN, UNK
     Route: 048
  2. LEVOTHYROXINE SODIUM [Concomitant]
     Indication: HYPOTHYROIDISM
     Dosage: 125 MG
     Route: 048
  3. TEGRETOL [Suspect]
     Indication: PARTIAL SEIZURES
     Dosage: 100MG AT NIGHT, 100MG AT DINNER, 200MG AT NIGHT
     Route: 048

REACTIONS (15)
  - MYALGIA [None]
  - MIGRAINE [None]
  - RASH [None]
  - ESCHERICHIA INFECTION [None]
  - ORAL PAIN [None]
  - TREMOR [None]
  - DIZZINESS [None]
  - ARTHRALGIA [None]
  - EAR PAIN [None]
  - URINARY TRACT INFECTION [None]
  - MALAISE [None]
  - GLOSSODYNIA [None]
  - TINNITUS [None]
  - BALANCE DISORDER [None]
  - DIARRHOEA [None]
